FAERS Safety Report 7989230-X (Version None)
Quarter: 2011Q4

REPORT INFORMATION
  Report Type: 
  Country: None (occurrence: None)
  Receive Date: 20111007
  Receipt Date: 20110811
  Transmission Date: 20120403
  Serious: No
  Sender: FDA-Public Use
  Company Number: 2011HGS-002358

PATIENT
  Age: 38 Year
  Sex: Female

DRUGS (5)
  1. PLAQUENIL (HYDROXYCHLOROQUINE SULFATE) (HYDROXYCHLOROQUINE SULFATE) [Concomitant]
  2. TYLENOL (PARACETAMOL) (PARACETAMOL) [Concomitant]
  3. BENLYSTA [Suspect]
     Indication: SYSTEMIC LUPUS ERYTHEMATOSUS
     Dosage: 10 MG/KG, INTRAVENOUS DRIP
     Route: 041
     Dates: start: 20110501, end: 20110101
  4. ATIVAN [Concomitant]
  5. DECADRON [Concomitant]

REACTIONS (6)
  - ARTHRALGIA [None]
  - PAIN [None]
  - HEADACHE [None]
  - NAUSEA [None]
  - FEELING JITTERY [None]
  - SOMNOLENCE [None]
